FAERS Safety Report 13347415 (Version 1)
Quarter: 2017Q1

REPORT INFORMATION
  Report Type: Spontaneous
  Country: GB (occurrence: GB)
  Receive Date: 20170317
  Receipt Date: 20170317
  Transmission Date: 20170428
  Serious: Yes (Other)
  Sender: FDA-Public Use
  Company Number: GB-JNJFOC-20170307060

PATIENT
  Age: 30 Year
  Sex: Female
  Weight: 95 kg

DRUGS (8)
  1. NAPROXEN. [Concomitant]
     Active Substance: NAPROXEN
     Indication: PRODUCT USED FOR UNKNOWN INDICATION
     Dosage: CUMULATIVE DOSE TO FIRST REACTION: 180 AFTER FOOD
     Route: 065
     Dates: start: 20161123, end: 20161221
  2. RIGEVIDON [Concomitant]
     Active Substance: ETHINYL ESTRADIOL\LEVONORGESTREL
     Indication: PRODUCT USED FOR UNKNOWN INDICATION
     Dosage: DOSE: 1 (UNIIT UNSPECIFIED).??AS DIRECTED
     Route: 065
     Dates: start: 20170104
  3. ZEROBASE [Concomitant]
     Indication: DRY SKIN
     Dosage: OFTEN AS NEEDED USE PLENTY
     Route: 065
     Dates: start: 20170104, end: 20170201
  4. COCODAMOL [Suspect]
     Active Substance: ACETAMINOPHEN\CODEINE PHOSPHATE
     Indication: PRODUCT USED FOR UNKNOWN INDICATION
     Route: 065
     Dates: start: 20170221
  5. NITROFURANTOIN. [Concomitant]
     Active Substance: NITROFURANTOIN
     Indication: PRODUCT USED FOR UNKNOWN INDICATION
     Dosage: DOSE: 1(UNIT UNSPECIFIED).CUMULATIVE DOSE TO FIRST REACTION: 340.0
     Route: 065
     Dates: start: 20161128, end: 20161205
  6. AMOXICILLIN. [Concomitant]
     Active Substance: AMOXICILLIN
     Indication: PRODUCT USED FOR UNKNOWN INDICATION
     Dosage: DOSE: 1 (UNIT UNSPECIFIED).CUMULATIVE DOSE TO FIRST REACTION: 225.0
     Route: 065
     Dates: start: 20161208, end: 20161213
  7. ADCAL [Concomitant]
     Active Substance: CALCIUM CARBONATE
     Indication: PRODUCT USED FOR UNKNOWN INDICATION
     Dosage: DOSE: 2 (UNIT UNSPECIFIED). ??CUMULATIVE DOSE TO FIRST REACTION: 1276.1666
     Route: 065
     Dates: start: 20160408
  8. BETAMETHASONE VALERATE. [Concomitant]
     Active Substance: BETAMETHASONE VALERATE
     Indication: PRODUCT USED FOR UNKNOWN INDICATION
     Dosage: DOSE: 1 (UNIIT UNSPECIFIED),?? CUMULATIVE DOSE TO FIRST REACTION; 96.0
     Route: 065
     Dates: start: 20170104, end: 20170111

REACTIONS (2)
  - Rash [Recovering/Resolving]
  - Lip swelling [Recovering/Resolving]

NARRATIVE: CASE EVENT DATE: 20170221
